FAERS Safety Report 10690722 (Version 1)
Quarter: 2015Q1

REPORT INFORMATION
  Report Type: Spontaneous
  Country: JP (occurrence: JP)
  Receive Date: 20150105
  Receipt Date: 20150105
  Transmission Date: 20150720
  Serious: Yes (Hospitalization)
  Sender: FDA-Public Use
  Company Number: JP-TEVA-531448ISR

PATIENT
  Age: 48 Year
  Sex: Female

DRUGS (13)
  1. FILGRASTIM BS INJ. ^NK^ (FILGRASTIM [GENETICAL RECOMBINATION]) [Suspect]
     Active Substance: FILGRASTIM
     Route: 058
     Dates: start: 20140717, end: 20140718
  2. 5-FU (FLUOROURACIL) [Suspect]
     Active Substance: FLUOROURACIL
     Indication: BREAST CANCER
     Route: 042
     Dates: start: 20140522, end: 20140731
  3. FILGRASTIM BS INJ. ^NK^ (FILGRASTIM [GENETICAL RECOMBINATION]) [Suspect]
     Active Substance: FILGRASTIM
     Indication: NEUTROPENIA
     Route: 058
     Dates: start: 20140605, end: 20140606
  4. FILGRASTIM BS INJ. ^NK^ (FILGRASTIM [GENETICAL RECOMBINATION]) [Suspect]
     Active Substance: FILGRASTIM
     Route: 058
     Dates: start: 20140626, end: 20140627
  5. EPIRUBICIN HYDROCHLORIDE. [Suspect]
     Active Substance: EPIRUBICIN HYDROCHLORIDE
     Indication: BREAST CANCER
     Route: 042
     Dates: start: 20140522, end: 20140731
  6. DECADRON [Concomitant]
     Active Substance: DEXAMETHASONE
     Dosage: 4 MILLIGRAM DAILY;
     Route: 048
     Dates: start: 20140522, end: 20140813
  7. FILGRASTIM BS INJ. ^NK^ (FILGRASTIM [GENETICAL RECOMBINATION]) [Suspect]
     Active Substance: FILGRASTIM
     Route: 058
     Dates: start: 20140814, end: 20140815
  8. DEXART [Concomitant]
     Active Substance: DEXAMETHASONE SODIUM PHOSPHATE
     Dosage: 1.65 MILLIGRAM DAILY;
     Route: 042
     Dates: start: 20140522, end: 20140904
  9. RINESTERON [Concomitant]
     Dosage: 4 MILLIGRAM DAILY;
     Route: 048
     Dates: start: 20140523, end: 20140525
  10. PACLITAXEL. [Concomitant]
     Active Substance: PACLITAXEL
     Dosage: 122 MILLIGRAM DAILY;
     Route: 042
     Dates: start: 20140904, end: 20140904
  11. ENDOXAN [Suspect]
     Active Substance: CYCLOPHOSPHAMIDE
     Indication: BREAST CANCER
     Route: 042
     Dates: start: 20140522, end: 20140731
  12. DEXART [Concomitant]
     Active Substance: DEXAMETHASONE SODIUM PHOSPHATE
     Dosage: 6.6 MILLIGRAM DAILY;
     Route: 042
     Dates: start: 20140522, end: 20140904
  13. HERCEPTIN (GENETICAL RECOMBINATION) [Concomitant]
     Dosage: 204 MILLIGRAM DAILY;
     Route: 042
     Dates: start: 20140904, end: 20140904

REACTIONS (2)
  - Interstitial lung disease [Recovering/Resolving]
  - Pyrexia [Recovering/Resolving]
